FAERS Safety Report 6192184-2 (Version None)
Quarter: 2009Q2

REPORT INFORMATION
  Report Type: 
  Country: None (occurrence: None)
  Receive Date: 20090515
  Receipt Date: 20090507
  Transmission Date: 20091009
  Serious: Yes (Hospitalization)
  Sender: FDA-Public Use
  Company Number: DE-WYE-H03012908

PATIENT
  Sex: Male
  Weight: 70 kg

DRUGS (13)
  1. RAPAMUNE [Suspect]
     Indication: PROPHYLAXIS AGAINST TRANSPLANT REJECTION
     Dosage: LOADING DOSE OF 5 MG/DAILY
     Route: 048
     Dates: start: 20080210, end: 20080210
  2. RAPAMUNE [Suspect]
     Route: 048
     Dates: start: 20080211, end: 20080220
  3. RAPAMUNE [Suspect]
     Dosage: ALTERNATING BETWEEN 1MG/DAY AND 2MG/DAY
     Route: 048
     Dates: start: 20080221, end: 20080101
  4. RAPAMUNE [Suspect]
     Route: 048
     Dates: start: 20080101
  5. RAPAMUNE [Suspect]
     Route: 048
  6. TACROLIMUS [Suspect]
     Indication: PROPHYLAXIS AGAINST TRANSPLANT REJECTION
     Route: 048
     Dates: start: 20080211, end: 20080228
  7. TACROLIMUS [Suspect]
     Dosage: DOSE HELD
     Route: 048
     Dates: start: 20080229, end: 20080303
  8. TACROLIMUS [Suspect]
     Route: 048
     Dates: start: 20080304
  9. URBASON [Concomitant]
     Indication: PROPHYLAXIS AGAINST TRANSPLANT REJECTION
     Route: 048
     Dates: start: 20080113, end: 20080121
  10. URBASON [Concomitant]
     Route: 048
     Dates: start: 20080122, end: 20080126
  11. URBASON [Concomitant]
     Route: 048
     Dates: start: 20080127, end: 20080228
  12. URBASON [Concomitant]
     Route: 048
     Dates: start: 20080229
  13. URBASON [Concomitant]
     Dosage: ^LTX, 1000 MG^
     Route: 065

REACTIONS (2)
  - CLOSTRIDIUM DIFFICILE COLITIS [None]
  - RENAL FAILURE ACUTE [None]
